FAERS Safety Report 12721409 (Version 3)
Quarter: 2016Q3

REPORT INFORMATION
  Report Type: Spontaneous
  Country: US (occurrence: US)
  Receive Date: 20160907
  Receipt Date: 20160929
  Transmission Date: 20161109
  Serious: Yes (Hospitalization)
  Sender: FDA-Public Use
  Company Number: US-009507513-1609USA000769

PATIENT
  Age: 33 Year
  Sex: Female

DRUGS (3)
  1. HYDROCORTONE [Suspect]
     Active Substance: HYDROCORTISONE
     Dosage: 40MG/DAY GIVEN IN DIVIDED DOSES
     Route: 048
  2. HYDROCORTONE [Suspect]
     Active Substance: HYDROCORTISONE
     Dosage: GRADUALLY TAPERED TO 30 MG/DAY OVER THE FOLLOWING SEVERAL MONTHS
     Route: 048
  3. HYDROCORTONE [Suspect]
     Active Substance: HYDROCORTISONE
     Indication: ADRENOCORTICAL STEROID THERAPY
     Dosage: TAPERED TO 15 MG DAILY (MAINTENANCE DOSE)
     Route: 048

REACTIONS (9)
  - Vomiting [Recovering/Resolving]
  - Nausea [Recovering/Resolving]
  - Presyncope [Recovering/Resolving]
  - Fatigue [Unknown]
  - Nausea [Unknown]
  - Drug ineffective [Unknown]
  - Drug intolerance [Unknown]
  - Malaise [Recovering/Resolving]
  - Arthralgia [Unknown]
